FAERS Safety Report 8476500-4 (Version None)
Quarter: 2012Q2

REPORT INFORMATION
  Report Type: 
  Country: None (occurrence: None)
  Receive Date: 20120628
  Receipt Date: 20120620
  Transmission Date: 20120825
  Serious: Yes (Hospitalization, Other)
  Sender: FDA-Public Use
  Company Number: US-ABBOTT-11P-163-0886743-00

PATIENT
  Sex: Male
  Weight: 104.87 kg

DRUGS (2)
  1. ENTOCORT EC [Concomitant]
     Indication: PRODUCT USED FOR UNKNOWN INDICATION
  2. HUMIRA [Suspect]
     Indication: CROHN'S DISEASE
     Dates: start: 20100401

REACTIONS (4)
  - INTESTINAL OBSTRUCTION [None]
  - DRY SKIN [None]
  - SMALL INTESTINAL OBSTRUCTION [None]
  - ENTEROCOLONIC FISTULA [None]
